FAERS Safety Report 15203885 (Version 1)
Quarter: 2018Q3

REPORT INFORMATION
  Report Type: Spontaneous
  Country: US (occurrence: US)
  Receive Date: 20180628
  Receipt Date: 20180628
  Transmission Date: 20181010
  Serious: Yes (Disabling)
  Sender: FDA-Public Use
  Company Number: None

PATIENT
  Age: 53 Year
  Sex: Female
  Weight: 113.4 kg

DRUGS (2)
  1. VITAMINS [Concomitant]
     Active Substance: VITAMINS
  2. GADOLINIUM [Suspect]
     Active Substance: GADOLINIUM

REACTIONS (5)
  - Blood pressure increased [None]
  - Cognitive disorder [None]
  - Pain in extremity [None]
  - Gait disturbance [None]
  - Speech disorder [None]

NARRATIVE: CASE EVENT DATE: 20171011
